FAERS Safety Report 10982214 (Version 1)
Quarter: 2015Q2

REPORT INFORMATION
  Report Type: Spontaneous
  Country: US (occurrence: None)
  Receive Date: 20150401
  Receipt Date: 20150401
  Transmission Date: 20150821
  Serious: No
  Sender: FDA-Public Use
  Company Number: None

PATIENT
  Age: 21 Year
  Sex: Female

DRUGS (5)
  1. TECFIDERA [Suspect]
     Active Substance: DIMETHYL FUMARATE
     Indication: MULTIPLE SCLEROSIS
     Dosage: 1 TABLET
     Route: 048
     Dates: start: 20150320, end: 20150330
  2. AMETHIA [Concomitant]
     Active Substance: ETHINYL ESTRADIOL\LEVONORGESTREL
  3. VALACYCLOVIR [Concomitant]
     Active Substance: VALACYCLOVIR HYDROCHLORIDE
  4. TRANS SCOP [Concomitant]
  5. FLUTICASONE [Concomitant]
     Active Substance: FLUTICASONE\FLUTICASONE PROPIONATE

REACTIONS (2)
  - Panic reaction [None]
  - Abdominal discomfort [None]

NARRATIVE: CASE EVENT DATE: 20150320
